FAERS Safety Report 5567371-4 (Version None)
Quarter: 2007Q4

REPORT INFORMATION
  Report Type: 
  Country: None (occurrence: None)
  Receive Date: 20071214
  Receipt Date: 20071207
  Transmission Date: 20080405
  Serious: Yes (Hospitalization, Other)
  Sender: FDA-Public Use
  Company Number: 15297

PATIENT
  Age: 43 Year
  Sex: Male

DRUGS (10)
  1. CYTOSINE ARABINOSIDE [Suspect]
     Indication: BURKITT'S LYMPHOMA
     Dates: start: 19980401, end: 19980901
  2. DOXORUBICIN HCL [Suspect]
     Indication: BURKITT'S LYMPHOMA
     Dosage: 6 DF PER_CYCLE IV
     Route: 042
     Dates: start: 19980401, end: 19980901
  3. METHOTREXATE [Suspect]
     Indication: BURKITT'S LYMPHOMA
     Dates: start: 19980401, end: 19980901
  4. VINCRISTINE [Suspect]
     Indication: BURKITT'S LYMPHOMA
     Dosage: 6 DF PER_CYCLE IV
     Route: 042
     Dates: start: 19980401, end: 19980901
  5. HYDROCORTISONE [Suspect]
     Indication: BURKITT'S LYMPHOMA
     Dates: start: 19980401, end: 19980901
  6. CYCLOPHOSPHAMIDE [Suspect]
     Indication: BURKITT'S LYMPHOMA
     Dosage: 6 DF PER_CYCLE IV
     Route: 042
     Dates: start: 19980401, end: 19980901
  7. PREDNISOLONE [Suspect]
     Indication: BURKITT'S LYMPHOMA
     Dosage: 2.35 G PO
     Route: 048
     Dates: start: 19980401, end: 19980901
  8. RITONAVIR [Suspect]
     Indication: ACQUIRED IMMUNODEFICIENCY SYNDROME
     Dosage: 800 MG DAILY PO
     Route: 048
     Dates: start: 19980401
  9. SAQUINAVIR [Suspect]
     Indication: ACQUIRED IMMUNODEFICIENCY SYNDROME
     Dosage: 800 MG DAILY PO
     Route: 048
     Dates: start: 19980401
  10. COTRIM [Concomitant]

REACTIONS (6)
  - BLOOD CHOLESTEROL INCREASED [None]
  - BLOOD TRIGLYCERIDES INCREASED [None]
  - OSTEONECROSIS [None]
  - OSTEOPOROSIS [None]
  - REFUSAL OF TREATMENT BY PATIENT [None]
  - SPINAL COMPRESSION FRACTURE [None]
